FAERS Safety Report 8009187-5 (Version None)
Quarter: 2011Q4

REPORT INFORMATION
  Report Type: 
  Country: None (occurrence: None)
  Receive Date: 20111227
  Receipt Date: 20111220
  Transmission Date: 20120403
  Serious: Yes (Other)
  Sender: FDA-Public Use
  Company Number: PHHY2011JP111373

PATIENT

DRUGS (1)
  1. ZOLEDRONIC [Suspect]
     Route: 041

REACTIONS (2)
  - OSTEONECROSIS OF JAW [None]
  - MOUTH ULCERATION [None]
